FAERS Safety Report 4847539-2 (Version None)
Quarter: 2005Q4

REPORT INFORMATION
  Report Type: 
  Country: None (occurrence: None)
  Receive Date: 20051205
  Receipt Date: 20051122
  Transmission Date: 20060501
  Serious: Yes (Hospitalization, Other)
  Sender: FDA-Public Use
  Company Number: HQWYE695823NOV05

PATIENT
  Age: 70 Year
  Sex: Male

DRUGS (14)
  1. CORDARONE [Suspect]
     Indication: ARRHYTHMIA
     Route: 048
     Dates: end: 20050601
  2. ATORVASTATIN CALCIUM [Suspect]
     Dosage: SEE IMAGE
     Route: 048
     Dates: end: 20050601
  3. ATORVASTATIN CALCIUM [Suspect]
     Dosage: SEE IMAGE
     Route: 048
     Dates: start: 20050719
  4. LEVOTHYROXINE SODIUM [Suspect]
     Indication: HYPOTHYROIDISM
     Dosage: SEE IMAGE
     Route: 048
     Dates: start: 20050501, end: 20050601
  5. LEVOTHYROXINE SODIUM [Suspect]
     Indication: HYPOTHYROIDISM
     Dosage: SEE IMAGE
     Route: 048
     Dates: start: 20050710, end: 20050716
  6. MARCUMAR [Concomitant]
  7. BELOC (METOPROLOL TARTRATE) [Concomitant]
  8. PROSCAR [Concomitant]
  9. TOREM (TORASEMIDE) [Concomitant]
  10. COVERSUM (PERINDOPRIL) [Concomitant]
  11. PRADIF (TAMSULOSIN HYDROCHLORIDE) [Concomitant]
  12. DYRENIUM COMPOSITION             (BENZTHIAZIDE/TRIAMTERENE) [Concomitant]
  13. MAGNESIUM            (MAGNESIUM) [Concomitant]
  14. NEXIUM [Concomitant]

REACTIONS (7)
  - ASTHENIA [None]
  - HYPOTHYROIDISM [None]
  - IMMOBILE [None]
  - MUSCLE ATROPHY [None]
  - MYALGIA [None]
  - MYOPATHY [None]
  - PERIPHERAL MOTOR NEUROPATHY [None]
